FAERS Safety Report 16019830 (Version 1)
Quarter: 2019Q1

REPORT INFORMATION
  Report Type: Spontaneous
  Country: US (occurrence: US)
  Receive Date: 20190228
  Receipt Date: 20190228
  Transmission Date: 20190418
  Serious: Yes (Other)
  Sender: FDA-Public Use
  Company Number: US-TEVA-2019-US-1018059

PATIENT
  Sex: Female

DRUGS (2)
  1. METFORMIN [Suspect]
     Active Substance: METFORMIN HYDROCHLORIDE
     Route: 065
     Dates: end: 2008
  2. GLYBURIDE. [Suspect]
     Active Substance: GLYBURIDE
     Route: 065
     Dates: end: 2008

REACTIONS (3)
  - Hypersensitivity [Unknown]
  - Apparent death [Unknown]
  - Myocardial infarction [Unknown]
